FAERS Safety Report 5094999-0 (Version None)
Quarter: 2006Q3

REPORT INFORMATION
  Report Type: 
  Country: None (occurrence: None)
  Receive Date: 20060901
  Receipt Date: 20060824
  Transmission Date: 20061208
  Serious: Yes (Hospitalization)
  Sender: FDA-Public Use
  Company Number: FR-AVENTIS-200612980FR

PATIENT
  Age: 80 Year
  Sex: Female
  Weight: 65 kg

DRUGS (7)
  1. LOVENOX [Suspect]
     Indication: THROMBOSIS PROPHYLAXIS
     Route: 058
     Dates: start: 20060601
  2. ZOLTUM [Suspect]
     Route: 048
     Dates: end: 20060710
  3. BIPRETERAX [Suspect]
     Route: 048
     Dates: end: 20060710
  4. EZETROL                                 /GFR/ [Suspect]
     Route: 048
     Dates: end: 20060710
  5. TEMERIT [Suspect]
     Indication: ESSENTIAL HYPERTENSION
     Route: 048
     Dates: end: 20060720
  6. PHYSIOTENS [Suspect]
     Route: 048
  7. TEMESTA [Concomitant]

REACTIONS (2)
  - CRYOGLOBULINAEMIA [None]
  - LEUKOCYTOCLASTIC VASCULITIS [None]
